FAERS Safety Report 4882321-1 (Version None)
Quarter: 2005Q4

REPORT INFORMATION
  Report Type: 
  Country: None (occurrence: None)
  Receive Date: 20051223
  Receipt Date: 20050907
  Transmission Date: 20060501
  Serious: No
  Sender: FDA-Public Use
  Company Number: 05P-163-0310419-00

PATIENT
  Age: 75 Year
  Sex: Female
  Weight: 49.4421 kg

DRUGS (7)
  1. HUMIRA [Suspect]
     Indication: RHEUMATOID ARTHRITIS
     Dosage: 40 MG, 1 IN 2 WK, SUBCUTANEOUS
     Route: 058
     Dates: start: 20050701
  2. ZAFIRLUKAST [Concomitant]
  3. RISEDRONATE SODIUM [Concomitant]
  4. TRIAMTERENE [Concomitant]
  5. DILTIAZEM HYDROCHLORIDE [Concomitant]
  6. SALBUTAMOL [Concomitant]
  7. SOLVENT [Concomitant]

REACTIONS (1)
  - INJECTION SITE URTICARIA [None]
